FAERS Safety Report 5524310-X (Version None)
Quarter: 2007Q4

REPORT INFORMATION
  Report Type: 
  Country: None (occurrence: None)
  Receive Date: 20071121
  Receipt Date: 20071112
  Transmission Date: 20080405
  Serious: Yes (Other)
  Sender: FDA-Public Use
  Company Number: JP-PFIZER INC-2007095554

PATIENT
  Sex: Female

DRUGS (3)
  1. NORVASC [Suspect]
     Route: 048
  2. NORVASC [Suspect]
     Dosage: DAILY DOSE:5MG
  3. LOSARTAN POTASSIUM [Concomitant]
     Dosage: DAILY DOSE:50MG
     Route: 048

REACTIONS (2)
  - BLOOD PRESSURE INCREASED [None]
  - INCORRECT DOSE ADMINISTERED [None]
